FAERS Safety Report 6502028-4 (Version None)
Quarter: 2009Q4

REPORT INFORMATION
  Report Type: 
  Country: None (occurrence: None)
  Receive Date: 20091214
  Receipt Date: 20091130
  Transmission Date: 20100525
  Serious: Yes (Other)
  Sender: FDA-Public Use
  Company Number: 1000010698

PATIENT
  Age: 37 Year
  Sex: Female

DRUGS (4)
  1. ESCITALOPRAM [Suspect]
  2. LAMICTIN [Suspect]
     Indication: AFFECTIVE DISORDER
     Dosage: 300 MG (300 MG,1 IN 1 D)
     Dates: end: 20090101
  3. LITHIUM CARBONATE [Suspect]
  4. GUAIFENESIN [Suspect]

REACTIONS (3)
  - CHEST DISCOMFORT [None]
  - PNEUMONIA [None]
  - RESPIRATION ABNORMAL [None]
